FAERS Safety Report 11359537 (Version 2)
Quarter: 2015Q3

REPORT INFORMATION
  Report Type: Report from Study
  Country: JP (occurrence: JP)
  Receive Date: 20150807
  Receipt Date: 20150904
  Transmission Date: 20151125
  Serious: Yes (Other)
  Sender: FDA-Public Use
  Company Number: JP-MERCK-1508JPN002002

PATIENT

DRUGS (3)
  1. PEGINTERFERON ALFA-2B [Suspect]
     Active Substance: PEGINTERFERON ALFA-2B
     Indication: CHRONIC HEPATITIS C
     Dosage: 1.5 MICROGRAM PER KILOGRAM, QW
     Route: 058
  2. TELAVIC [Suspect]
     Active Substance: TELAPREVIR
     Indication: CHRONIC HEPATITIS C
     Dosage: 750 MG, Q8H
     Route: 048
  3. REBETOL [Suspect]
     Active Substance: RIBAVIRIN
     Indication: CHRONIC HEPATITIS C
     Dosage: 600-1000 MG BASED ON BODY WEIGHT
     Route: 048

REACTIONS (6)
  - Mental disorder [Unknown]
  - B-cell lymphoma [Unknown]
  - Thrombocytopenia [Unknown]
  - Neutropenia [Unknown]
  - Fatigue [Unknown]
  - Anaemia [Unknown]
